FAERS Safety Report 5993746-5 (Version None)
Quarter: 2008Q4

REPORT INFORMATION
  Report Type: 
  Country: None (occurrence: None)
  Receive Date: 20081212
  Receipt Date: 20081201
  Transmission Date: 20090506
  Serious: Yes (Hospitalization)
  Sender: FDA-Public Use
  Company Number: GB-ASTRAZENECA-2003GB01333

PATIENT
  Age: 20445 Day
  Sex: Female
  Weight: 49 kg

DRUGS (4)
  1. ARIMIDEX [Suspect]
     Indication: BREAST CANCER
     Route: 048
     Dates: start: 19980528, end: 20030527
  2. ASPIRIN [Concomitant]
     Indication: PROPHYLAXIS
     Route: 048
     Dates: start: 20020813, end: 20020915
  3. ASPIRIN [Concomitant]
     Route: 048
     Dates: start: 20050824
  4. CIPRAMOL [Concomitant]
     Indication: DEPRESSION
     Dosage: 20MG, INCREASED TO 40MG; DATES UNSPECIFIED
     Route: 048

REACTIONS (1)
  - ERYTHROMELALGIA [None]
